FAERS Safety Report 13697687 (Version 2)
Quarter: 2017Q4

REPORT INFORMATION
  Report Type: Spontaneous
  Country: US (occurrence: US)
  Receive Date: 20170628
  Receipt Date: 20171013
  Transmission Date: 20180320
  Serious: Yes (Other)
  Sender: FDA-Public Use
  Company Number: US-BAYER-2017-124379

PATIENT
  Age: 42 Year
  Sex: Female
  Weight: 92.52 kg

DRUGS (3)
  1. MIRENA [Suspect]
     Active Substance: LEVONORGESTREL
     Indication: MENORRHAGIA
     Dosage: 20 MCG/24HR, CONT
     Route: 015
     Dates: start: 20170622
  2. MIRENA [Suspect]
     Active Substance: LEVONORGESTREL
     Indication: CONTRACEPTION
     Dosage: 20 MCG/24HR, CONT
     Route: 015
     Dates: start: 20140717, end: 201706
  3. MIRENA [Suspect]
     Active Substance: LEVONORGESTREL
     Indication: PELVIC PAIN

REACTIONS (5)
  - Procedural dizziness [Unknown]
  - Embedded device [Recovered/Resolved]
  - Abdominal pain [None]
  - Pelvic discomfort [None]
  - Pelvic pain [None]

NARRATIVE: CASE EVENT DATE: 2017
